FAERS Safety Report 25853698 (Version 1)
Quarter: 2025Q3

REPORT INFORMATION
  Report Type: Spontaneous
  Country: US (occurrence: US)
  Receive Date: 20250926
  Receipt Date: 20250926
  Transmission Date: 20251021
  Serious: No
  Sender: MYLAN
  Company Number: US-MYLANLABS-2025M1080306

PATIENT
  Sex: Female

DRUGS (1)
  1. NITROGLYCERIN TRANSDERMAL DELIVERY SYSTEM [Suspect]
     Active Substance: NITROGLYCERIN
     Indication: Product used for unknown indication
     Dosage: 0.1 MILLIGRAM, QH (PER HOUR)

REACTIONS (1)
  - Product dose omission in error [Unknown]

NARRATIVE: CASE EVENT DATE: 20250901
